FAERS Safety Report 7674774-0 (Version None)
Quarter: 2011Q3

REPORT INFORMATION
  Report Type: 
  Country: None (occurrence: None)
  Receive Date: 20110810
  Receipt Date: 20110805
  Transmission Date: 20111222
  Serious: Yes (Hospitalization, Other)
  Sender: FDA-Public Use
  Company Number: JP-GLAXOSMITHKLINE-B0714652A

PATIENT
  Age: 30 Year
  Sex: Female

DRUGS (3)
  1. FOLIC ACID [Concomitant]
     Indication: EPILEPSY
     Dosage: 10MG PER DAY
     Route: 048
     Dates: start: 20110302, end: 20110412
  2. LAMICTAL [Suspect]
     Indication: EPILEPSY
     Dosage: 25MG PER DAY
     Route: 048
     Dates: start: 20110302, end: 20110329
  3. DEPAKENE [Concomitant]
     Indication: EPILEPSY
     Route: 048
     Dates: start: 19980101, end: 20110412

REACTIONS (34)
  - APHASIA [None]
  - RASH [None]
  - FLUSHING [None]
  - BLOOD ALKALINE PHOSPHATASE INCREASED [None]
  - PAIN [None]
  - HUMAN HERPESVIRUS 6 INFECTION [None]
  - DYSPNOEA [None]
  - HEPATIC FUNCTION ABNORMAL [None]
  - PLATELET COUNT INCREASED [None]
  - WHITE BLOOD CELL COUNT INCREASED [None]
  - MUSCULOSKELETAL STIFFNESS [None]
  - EOSINOPHIL PERCENTAGE INCREASED [None]
  - RED BLOOD CELL COUNT INCREASED [None]
  - SHOCK [None]
  - DEPRESSED LEVEL OF CONSCIOUSNESS [None]
  - PROTEIN TOTAL INCREASED [None]
  - TOXIC SKIN ERUPTION [None]
  - TREMOR [None]
  - MYALGIA [None]
  - BLOOD CREATININE DECREASED [None]
  - DRUG RASH WITH EOSINOPHILIA AND SYSTEMIC SYMPTOMS [None]
  - ASCITES [None]
  - BACK PAIN [None]
  - PNEUMONIA ASPIRATION [None]
  - DYSKINESIA [None]
  - HYPONATRAEMIA [None]
  - BLOOD CHLORIDE DECREASED [None]
  - LYMPHADENOPATHY [None]
  - POLYNEUROPATHY [None]
  - ALANINE AMINOTRANSFERASE INCREASED [None]
  - ASPARTATE AMINOTRANSFERASE INCREASED [None]
  - ARTHRALGIA [None]
  - BLOOD SODIUM DECREASED [None]
  - PYREXIA [None]
